FAERS Safety Report 9779340 (Version 1)
Quarter: 2013Q4

REPORT INFORMATION
  Report Type: Report from Study
  Country: NO (occurrence: NO)
  Receive Date: 20131223
  Receipt Date: 20131223
  Transmission Date: 20140711
  Serious: Yes (Death)
  Sender: FDA-Public Use
  Company Number: NO-BAXTER-2013BAX052647

PATIENT
  Sex: 0

DRUGS (5)
  1. SEVOFLURAN BAXTER 100% V?SKE TIL INHALASJONSDAMP [Suspect]
     Indication: ANAESTHESIA
     Dosage: 0.7-1.5 MAC
     Route: 065
  2. FENTANYL [Suspect]
     Indication: INDUCTION OF ANAESTHESIA
     Dosage: 0.1-0.3MG
     Route: 042
  3. FENTANYL [Suspect]
     Dosage: 0.05-0.1 MG
     Route: 042
  4. THIOPENTAL SODIUM [Suspect]
     Indication: INDUCTION OF ANAESTHESIA
     Dosage: 3-6MG/KG
     Route: 042
  5. PARACETAMOL [Concomitant]
     Indication: PREMEDICATION
     Dosage: 1.5G TO 2.0G
     Route: 065

REACTIONS (1)
  - Acute myocardial infarction [Fatal]
